FAERS Safety Report 5399962-8 (Version None)
Quarter: 2007Q3

REPORT INFORMATION
  Report Type: 
  Country: None (occurrence: None)
  Receive Date: 20070726
  Receipt Date: 20070726
  Transmission Date: 20080115
  Serious: Yes (Other)
  Sender: FDA-Public Use
  Company Number: None

PATIENT
  Sex: Female
  Weight: 72.5755 kg

DRUGS (2)
  1. AMLODIPINE [Suspect]
     Indication: HYPERTENSION
     Dosage: 5 MG 1 DAILY BY MOUTH
     Route: 048
     Dates: start: 20070601
  2. AMLODIPINE [Suspect]
     Indication: HYPERTENSION
     Dosage: 5 MG 1 DAILY BY MOUTH
     Route: 048
     Dates: start: 20070725

REACTIONS (4)
  - BLOOD PRESSURE INADEQUATELY CONTROLLED [None]
  - HEADACHE [None]
  - NAUSEA [None]
  - VOMITING [None]
